FAERS Safety Report 6615621-5 (Version None)
Quarter: 2010Q1

REPORT INFORMATION
  Report Type: 
  Country: None (occurrence: None)
  Receive Date: 20100305
  Receipt Date: 20100222
  Transmission Date: 20100710
  Serious: Yes (Hospitalization, Other)
  Sender: FDA-Public Use
  Company Number: US-BAYER-201014691NA

PATIENT
  Age: 26 Year
  Sex: Female
  Weight: 56 kg

DRUGS (1)
  1. MIRENA [Suspect]
     Indication: CONTRACEPTION
     Dosage: REMOVED BY LAPAROSCOPIC SURGERY
     Route: 015
     Dates: start: 20090401, end: 20100218

REACTIONS (5)
  - DEVICE DISLOCATION [None]
  - DYSMENORRHOEA [None]
  - MENORRHAGIA [None]
  - OLIGOMENORRHOEA [None]
  - WEIGHT DECREASED [None]
